FAERS Safety Report 11777846 (Version 1)
Quarter: 2015Q4

REPORT INFORMATION
  Report Type: Spontaneous
  Country: US (occurrence: US)
  Receive Date: 20151125
  Receipt Date: 20151125
  Transmission Date: 20160304
  Serious: Yes (Other)
  Sender: FDA-Public Use
  Company Number: US-THE MEDICINES COMPANY-US-MDCO-15-00294

PATIENT
  Age: 66 Year
  Sex: Male

DRUGS (2)
  1. VERSED [Concomitant]
     Active Substance: MIDAZOLAM HYDROCHLORIDE
     Indication: PERCUTANEOUS CORONARY INTERVENTION
     Dosage: NOT REPORTED
     Route: 042
  2. ANGIOMAX [Suspect]
     Active Substance: BIVALIRUDIN
     Indication: PERCUTANEOUS CORONARY INTERVENTION
     Dosage: STANDARD DOSE
     Route: 042
     Dates: start: 20150320

REACTIONS (2)
  - Thrombosis [Unknown]
  - Coagulation time abnormal [Unknown]

NARRATIVE: CASE EVENT DATE: 20150320
